FAERS Safety Report 6051275-7 (Version None)
Quarter: 2009Q1

REPORT INFORMATION
  Report Type: 
  Country: None (occurrence: None)
  Receive Date: 20090126
  Receipt Date: 20090116
  Transmission Date: 20090719
  Serious: Yes (Hospitalization)
  Sender: FDA-Public Use
  Company Number: US-BIOGENIDEC-2008BI021698

PATIENT
  Age: 54 Year
  Sex: Female

DRUGS (2)
  1. TYSABRI [Suspect]
     Indication: MULTIPLE SCLEROSIS
     Route: 042
     Dates: start: 20071129, end: 20080711
  2. TYSABRI [Suspect]
     Route: 042
     Dates: start: 20090109

REACTIONS (3)
  - LUMBAR SPINAL STENOSIS [None]
  - MULTIPLE SCLEROSIS [None]
  - MUSCLE SPASTICITY [None]
